FAERS Safety Report 21108448 (Version 1)
Quarter: 2022Q3

REPORT INFORMATION
  Report Type: Other
  Country: US (occurrence: None)
  Receive Date: 20220721
  Receipt Date: 20220721
  Transmission Date: 20221027
  Serious: Yes (Hospitalization)
  Sender: FDA-Public Use
  Company Number: US-ROCHE-3141148

PATIENT
  Sex: Female

DRUGS (1)
  1. XELODA [Suspect]
     Active Substance: CAPECITABINE
     Indication: Breast cancer metastatic
     Dosage: TAKE 3 TABLET(S) (1500MG) BY MOUTH TWICE A DAY FOR 14 DAY(S) ON, THEN 7 DAY(S) OFF OF EACH 21 DAY CY
     Route: 048

REACTIONS (2)
  - Feeding disorder [Unknown]
  - Pain in extremity [Unknown]
